FAERS Safety Report 4317437-1 (Version None)
Quarter: 2004Q1

REPORT INFORMATION
  Report Type: 
  Country: None (occurrence: None)
  Receive Date: 20040312
  Receipt Date: 20040303
  Transmission Date: 20041129
  Serious: Yes (Death)
  Sender: FDA-Public Use
  Company Number: 2004AP01317

PATIENT
  Age: 79 Year
  Sex: Male

DRUGS (1)
  1. IRESSA [Suspect]
     Indication: CARCINOMA
     Dosage: 250 MG DAILY PO
     Route: 048
     Dates: start: 20030907, end: 20030916

REACTIONS (2)
  - GASTRIC ULCER [None]
  - HAEMATEMESIS [None]
